FAERS Safety Report 5248235-2 (Version None)
Quarter: 2007Q1

REPORT INFORMATION
  Report Type: 
  Country: None (occurrence: None)
  Receive Date: 20070227
  Receipt Date: 20060830
  Transmission Date: 20070707
  Serious: No
  Sender: FDA-Public Use
  Company Number: US-BRISTOL-MYERS SQUIBB COMPANY-13493028

PATIENT
  Age: 57 Year
  Sex: Male
  Weight: 77 kg

DRUGS (8)
  1. GLUCOVANCE [Suspect]
     Indication: DIABETES MELLITUS MANAGEMENT
     Dosage: GLUCOVANCE 5MG/500MG 1 OR 2 TABLETS DAILY.
     Dates: start: 20051201
  2. GLUCOPHAGE [Suspect]
     Route: 048
     Dates: start: 20060201
  3. ALLEGRA [Concomitant]
  4. ALBUTEROL [Concomitant]
  5. AZMACORT [Concomitant]
  6. FLONASE [Concomitant]
  7. GLUCOTROL XL [Concomitant]
  8. PAIN MEDICATIONS [Concomitant]

REACTIONS (1)
  - RASH PRURITIC [None]
